FAERS Safety Report 16346446 (Version 1)
Quarter: 2019Q2

REPORT INFORMATION
  Report Type: Spontaneous
  Country: US (occurrence: US)
  Receive Date: 20190523
  Receipt Date: 20190523
  Transmission Date: 20190711
  Serious: Yes (Hospitalization)
  Sender: FDA-Public Use
  Company Number: US-TEVA-2019-US-1052809

PATIENT
  Age: 35 Year
  Sex: Male

DRUGS (7)
  1. AMPHOTERICIN B. [Suspect]
     Active Substance: AMPHOTERICIN B
     Indication: PENICILLIUM INFECTION
     Route: 065
  2. AMPHOTERICIN B, LIPOSOMAL [Suspect]
     Active Substance: AMPHOTERICIN B
     Indication: PENICILLIUM INFECTION
     Route: 065
  3. COLCHICINE. [Suspect]
     Active Substance: COLCHICINE
     Route: 065
  4. POSACONAZOLE [Concomitant]
     Active Substance: POSACONAZOLE
     Indication: PENICILLIUM INFECTION
     Route: 065
  5. CASPOFUNGIN [Concomitant]
     Active Substance: CASPOFUNGIN
     Indication: PENICILLIUM INFECTION
     Route: 065
  6. FUROSEMIDE. [Suspect]
     Active Substance: FUROSEMIDE
     Route: 065
  7. SPIRONOLACTONE. [Suspect]
     Active Substance: SPIRONOLACTONE
     Route: 065

REACTIONS (2)
  - Acute kidney injury [Unknown]
  - Incorrect product formulation administered [Unknown]
